FAERS Safety Report 25775411 (Version 1)
Quarter: 2025Q3

REPORT INFORMATION
  Report Type: Spontaneous
  Country: US (occurrence: US)
  Receive Date: 20250909
  Receipt Date: 20250909
  Transmission Date: 20251020
  Serious: No
  Sender: CIPLA
  Company Number: US-CIPLA LTD.-2025US01404

PATIENT

DRUGS (1)
  1. DICLOFENAC [Suspect]
     Active Substance: DICLOFENAC
     Indication: Neck pain
     Route: 065
     Dates: start: 202501

REACTIONS (2)
  - Off label use [Unknown]
  - Packaging design issue [Unknown]

NARRATIVE: CASE EVENT DATE: 20250101
